FAERS Safety Report 6935009-7 (Version None)
Quarter: 2010Q3

REPORT INFORMATION
  Report Type: 
  Country: None (occurrence: None)
  Receive Date: 20100822
  Receipt Date: 20100809
  Transmission Date: 20110219
  Serious: Yes (Hospitalization, Other)
  Sender: FDA-Public Use
  Company Number: PHHY2010FR53606

PATIENT
  Sex: Male

DRUGS (18)
  1. NEORAL [Suspect]
     Indication: HEART TRANSPLANT
     Dosage: 100 MG DAILY
     Route: 048
     Dates: start: 20100628, end: 20100704
  2. NEORAL [Suspect]
     Dosage: 150 MG, BID
     Route: 048
     Dates: start: 20100705, end: 20100712
  3. NEORAL [Suspect]
     Dosage: 175 MG, BID
     Route: 048
     Dates: start: 20100713, end: 20100716
  4. NEORAL [Suspect]
     Dosage: 150 MG, BID
     Route: 048
     Dates: start: 20100719
  5. CELLCEPT [Suspect]
     Indication: HEART TRANSPLANT
     Dosage: 2 G DAILY
     Dates: start: 20100619, end: 20100716
  6. CELLCEPT [Suspect]
     Dosage: 1 G DAILY
     Dates: start: 20100719
  7. ASPEGIC 1000 [Concomitant]
     Dosage: UNK
     Dates: start: 20100628
  8. BACTRIM [Concomitant]
     Dosage: 800 MG DAILY
     Dates: start: 20100628
  9. CORTANCYL [Concomitant]
     Dosage: 40 MG DAILY
     Dates: start: 20100628
  10. CORTANCYL [Concomitant]
     Dosage: 20 MG DAILY
     Dates: start: 20100719
  11. PERINDOPRIL ERBUMINE [Concomitant]
     Dosage: UNK
     Dates: start: 20100628
  12. NEXIUM [Concomitant]
     Dosage: UNK
     Dates: start: 20100628
  13. LASIX [Concomitant]
     Dosage: UNK
     Dates: start: 20100628
  14. LOVENOX [Concomitant]
     Dosage: UNK
     Dates: start: 20100628, end: 20100716
  15. LOVENOX [Concomitant]
     Dosage: UNK
     Dates: start: 20100719
  16. ATORVASTATIN CALCIUM [Concomitant]
     Dosage: UNK
     Dates: start: 20100728
  17. INSULIN [Concomitant]
     Dosage: UNK
     Dates: start: 20100628
  18. PRIVIGEN [Concomitant]
     Dosage: UNK
     Dates: start: 20100628

REACTIONS (5)
  - CYTOMEGALOVIRUS INFECTION [None]
  - LYMPHOPENIA [None]
  - NEUTROPENIA [None]
  - PANCYTOPENIA [None]
  - THROMBOCYTOPENIA [None]
